FAERS Safety Report 21838383 (Version 1)
Quarter: 2023Q1

REPORT INFORMATION
  Report Type: Spontaneous
  Country: CA (occurrence: CA)
  Receive Date: 20230109
  Receipt Date: 20230109
  Transmission Date: 20230417
  Serious: Yes (Other)
  Sender: FDA-Public Use
  Company Number: CA-ORGANON-O2105CAN002004

PATIENT
  Sex: Female

DRUGS (1)
  1. FOSAMAX [Suspect]
     Active Substance: ALENDRONATE SODIUM
     Indication: Product used for unknown indication
     Dosage: 70 MILLIGRAM (REPORTED AS 4 FOSAMAX 70 MG CO)
     Route: 048

REACTIONS (2)
  - Bone disorder [Unknown]
  - Femur fracture [Unknown]

NARRATIVE: CASE EVENT DATE: 20210217
